FAERS Safety Report 8925643 (Version 2)
Quarter: 2012Q4

REPORT INFORMATION
  Report Type: 
  Country: US (occurrence: US)
  Receive Date: 20121126
  Receipt Date: 20121205
  Transmission Date: 20130627
  Serious: Yes (Hospitalization)
  Sender: FDA-Public Use
  Company Number: US-VERTEX PHARMACEUTICAL INC.-2012-024869

PATIENT
  Age: 63 Year
  Sex: Female
  Weight: 73.47 kg

DRUGS (7)
  1. VX-950 (TELAPREVIR) [Suspect]
     Indication: HEPATITIS C
     Dosage: 750 mg, tid
     Route: 048
     Dates: start: 20121115, end: 20121123
  2. RIBAVIRIN [Suspect]
     Indication: HEPATITIS C
     Dosage: 600 mg in am + 400 mg in pm
     Route: 048
     Dates: start: 20121115, end: 20121123
  3. PEGASYS [Suspect]
     Indication: HEPATITIS C
     Dosage: 180 ?g, qw
     Route: 058
     Dates: start: 20121114, end: 20121123
  4. SPIRIVA [Concomitant]
     Dosage: 1 DF, qd
  5. ADVAIR UNSPEC [Concomitant]
     Dosage: UNK, bid
  6. COMBIVENT [Concomitant]
     Dosage: UNK, prn
  7. NORVASC [Concomitant]
     Dosage: UNK, qd
     Route: 048

REACTIONS (12)
  - Dyspnoea [None]
  - Throat irritation [Recovered/Resolved]
  - Alopecia [Recovered/Resolved]
  - Vomiting [Recovered/Resolved]
  - Nausea [Recovered/Resolved]
  - Dysgeusia [Recovered/Resolved]
  - Dyspnoea exertional [Recovered/Resolved]
  - Dehydration [Recovered/Resolved]
  - Palpitations [Recovered/Resolved]
  - Insomnia [Not Recovered/Not Resolved]
  - Dry throat [Recovered/Resolved]
  - Fatigue [Not Recovered/Not Resolved]
